FAERS Safety Report 9871893 (Version 1)
Quarter: 2014Q1

REPORT INFORMATION
  Report Type: Spontaneous
  Country: GB (occurrence: GB)
  Receive Date: 20140205
  Receipt Date: 20140205
  Transmission Date: 20141002
  Serious: Yes (Hospitalization, Other)
  Sender: FDA-Public Use
  Company Number: GB-B.I. PHARMACEUTICALS,INC./RIDGEFIELD-2014-BI-03915UK

PATIENT
  Age: 77 Year
  Sex: Male
  Weight: 84.7 kg

DRUGS (10)
  1. TRAJENTA [Suspect]
     Indication: DIABETES MELLITUS INADEQUATE CONTROL
     Route: 048
     Dates: start: 20131106, end: 20131228
  2. ASPIRIN [Concomitant]
  3. ATORVASTATIN [Concomitant]
  4. CLENIL MODULITE [Concomitant]
  5. ESOMEPRAZOLE [Concomitant]
  6. GLICLAZIDE [Concomitant]
  7. LISINOPRIL [Concomitant]
  8. METFORMIN [Concomitant]
  9. SALBUTAMOL [Concomitant]
  10. SILDENAFIL [Concomitant]

REACTIONS (3)
  - Renal failure acute [Unknown]
  - Liver function test abnormal [Recovered/Resolved]
  - Renal impairment [Recovered/Resolved]
